FAERS Safety Report 12606362 (Version 1)
Quarter: 2016Q3

REPORT INFORMATION
  Report Type: Spontaneous
  Country: NO (occurrence: NO)
  Receive Date: 20160729
  Receipt Date: 20160729
  Transmission Date: 20161109
  Serious: Yes (Hospitalization)
  Sender: FDA-Public Use
  Company Number: NO-CLINIGEN GROUP PLC/ CLINIGEN HEALTHCARE LTD-NO-CLGN-16-00144

PATIENT
  Age: 76 Year
  Sex: Male

DRUGS (2)
  1. SAVENE [Suspect]
     Active Substance: DEXRAZOXANE
     Indication: EXTRAVASATION
     Route: 042
     Dates: start: 20160628, end: 20160629
  2. SAVENE [Suspect]
     Active Substance: DEXRAZOXANE
     Route: 042
     Dates: start: 20160630, end: 20160630

REACTIONS (3)
  - Disseminated intravascular coagulation [Recovered/Resolved]
  - Peripheral swelling [Recovering/Resolving]
  - Ecchymosis [Recovering/Resolving]

NARRATIVE: CASE EVENT DATE: 20160701
